FAERS Safety Report 14081521 (Version 1)
Quarter: 2017Q4

REPORT INFORMATION
  Report Type: Spontaneous
  Country: US (occurrence: None)
  Receive Date: 20171012
  Receipt Date: 20171012
  Transmission Date: 20180321
  Serious: No
  Sender: FDA-Public Use
  Company Number: None

PATIENT
  Age: 44 Year
  Sex: Male

DRUGS (2)
  1. INSULIN GLARGINE [Suspect]
     Active Substance: INSULIN GLARGINE
     Indication: HYPERGLYCAEMIA
     Dosage: DOSE - 25 UNITS
     Route: 058
     Dates: start: 20170904, end: 20170905
  2. INSULIN ASPART [Suspect]
     Active Substance: INSULIN ASPART
     Dosage: DOSE - 6 UNITS WITH MEALS + MEDIUM
     Route: 058

REACTIONS (3)
  - Hypoglycaemia [None]
  - Unresponsive to stimuli [None]
  - Seizure [None]

NARRATIVE: CASE EVENT DATE: 20170904
